FAERS Safety Report 11515659 (Version 1)
Quarter: 2015Q3

REPORT INFORMATION
  Report Type: Report from Study
  Country: VE (occurrence: VE)
  Receive Date: 20150916
  Receipt Date: 20150916
  Transmission Date: 20151125
  Serious: Yes (Other)
  Sender: FDA-Public Use
  Company Number: PHHY2015VE110024

PATIENT
  Age: 18 Year
  Sex: Female

DRUGS (4)
  1. CITRACAL//CALCIUM CITRATE [Concomitant]
     Indication: BLOOD CALCIUM ABNORMAL
     Dosage: 500 MG, QD
     Route: 065
     Dates: start: 2015
  2. ACLASTA [Suspect]
     Active Substance: ZOLEDRONIC ACID
     Dosage: LAST APPPLICATION IN MAY (YEAR NOT SPECIFIED)
     Route: 065
  3. POTASSIUM BICARBONATE. [Concomitant]
     Active Substance: POTASSIUM BICARBONATE
     Indication: RENAL DISORDER
     Dosage: UNK UNK, QD
     Route: 065
     Dates: start: 2015
  4. ACLASTA [Suspect]
     Active Substance: ZOLEDRONIC ACID
     Indication: OSTEOGENESIS IMPERFECTA
     Dosage: 5 MG/DL, EVERY 6 MONTHS
     Route: 042

REACTIONS (1)
  - Femur fracture [Recovering/Resolving]

NARRATIVE: CASE EVENT DATE: 20150227
